FAERS Safety Report 7885499-0 (Version None)
Quarter: 2011Q4

REPORT INFORMATION
  Report Type: 
  Country: None (occurrence: None)
  Receive Date: 20111102
  Receipt Date: 20111024
  Transmission Date: 20120403
  Serious: Yes (Hospitalization)
  Sender: FDA-Public Use
  Company Number: JP-CELGENEUS-087-50794-11052606

PATIENT
  Sex: Female
  Weight: 35 kg

DRUGS (4)
  1. LANSOPRAZOLE [Concomitant]
     Route: 065
  2. VIDAZA [Suspect]
     Dosage: 75 MILLIGRAM/SQ. METER
     Route: 058
     Dates: start: 20110509, end: 20110515
  3. ADENOSINE [Concomitant]
     Route: 065
  4. MAGMITT [Concomitant]
     Route: 065

REACTIONS (1)
  - OPTIC NEURITIS [None]
